FAERS Safety Report 6297031-6 (Version None)
Quarter: 2009Q3

REPORT INFORMATION
  Report Type: 
  Country: None (occurrence: None)
  Receive Date: 20090804
  Receipt Date: 20090728
  Transmission Date: 20100115
  Serious: Yes (Other)
  Sender: FDA-Public Use
  Company Number: FR-GENENTECH-286239

PATIENT
  Sex: Female

DRUGS (3)
  1. XOLAIR [Suspect]
     Indication: DRUG USE FOR UNKNOWN INDICATION
     Dosage: 225 MG, UNK
     Dates: start: 20070908
  2. XOLAIR [Suspect]
     Dosage: 225 MG, 1/MONTH
     Dates: start: 20081201
  3. XOLAIR [Suspect]
     Dosage: UNK
     Dates: start: 20090311

REACTIONS (2)
  - ANAPHYLACTIC REACTION [None]
  - INJECTION SITE HAEMATOMA [None]
